FAERS Safety Report 4807775-8 (Version None)
Quarter: 2005Q4

REPORT INFORMATION
  Report Type: 
  Country: None (occurrence: None)
  Receive Date: 20051020
  Receipt Date: 20051009
  Transmission Date: 20060501
  Serious: Yes (Other)
  Sender: FDA-Public Use
  Company Number: 2005139192

PATIENT
  Age: 27 Year
  Sex: Female
  Weight: 52.1637 kg

DRUGS (1)
  1. UNISOM [Suspect]
     Dosage: 25 SLEEPGELS ONCE, ORAL
     Route: 048
     Dates: start: 20051008, end: 20051008

REACTIONS (3)
  - INSOMNIA [None]
  - OVERDOSE [None]
  - TREMOR [None]
